FAERS Safety Report 16750780 (Version 1)
Quarter: 2019Q3

REPORT INFORMATION
  Report Type: Spontaneous
  Country: TW (occurrence: TW)
  Receive Date: 20190828
  Receipt Date: 20190828
  Transmission Date: 20191005
  Serious: Yes (Other)
  Sender: FDA-Public Use
  Company Number: TW-PFIZER INC-2019367847

PATIENT
  Age: 80 Year
  Sex: Female

DRUGS (2)
  1. CRIZOTINIB [Suspect]
     Active Substance: CRIZOTINIB
     Indication: ANAPLASTIC LYMPHOMA KINASE GENE MUTATION
     Dosage: 250 MG, 2X/DAY
     Route: 048
     Dates: start: 20180201
  2. CRIZOTINIB [Suspect]
     Active Substance: CRIZOTINIB
     Indication: LUNG ADENOCARCINOMA

REACTIONS (3)
  - Gastrointestinal haemorrhage [Recovered/Resolved]
  - Normocytic anaemia [Recovered/Resolved]
  - Erosive oesophagitis [Recovered/Resolved]

NARRATIVE: CASE EVENT DATE: 201802
